FAERS Safety Report 10011816 (Version 3)
Quarter: 2014Q2

REPORT INFORMATION
  Report Type: Report from Study
  Country: ES (occurrence: ES)
  Receive Date: 20140314
  Receipt Date: 20140519
  Transmission Date: 20141212
  Serious: Yes (Other)
  Sender: FDA-Public Use
  Company Number: ES-009507513-1305ESP001599

PATIENT
  Age: 38 Year
  Sex: Female
  Weight: 69 kg

DRUGS (5)
  1. BOCEPREVIR [Suspect]
     Indication: CHRONIC HEPATITIS C
     Dosage: 2400 MG PER DAY
     Route: 048
     Dates: start: 20130329, end: 20130713
  2. REBETOL [Suspect]
     Indication: CHRONIC HEPATITIS C
     Dosage: 1200 MG, QD
     Route: 048
     Dates: start: 20130225
  3. REBETOL [Suspect]
     Dosage: 1000 MG, QD
     Route: 048
     Dates: end: 20130623
  4. REBETOL [Suspect]
     Dosage: 600 MG, QD
     Route: 048
     Dates: start: 20130624, end: 20130713
  5. PEGASYS [Suspect]
     Indication: CHRONIC HEPATITIS C
     Dosage: 180 MICROGRAM, QW
     Route: 030
     Dates: start: 20130225, end: 20130713

REACTIONS (10)
  - Depression [Recovered/Resolved]
  - Influenza like illness [Not Recovered/Not Resolved]
  - Asthenia [Not Recovered/Not Resolved]
  - Dyspepsia [Not Recovered/Not Resolved]
  - Nausea [Not Recovered/Not Resolved]
  - Abdominal discomfort [Not Recovered/Not Resolved]
  - Anaemia [Recovered/Resolved]
  - Anaemia [Recovered/Resolved]
  - Neutropenia [Recovered/Resolved]
  - Drug ineffective [Unknown]
